FAERS Safety Report 25715300 (Version 1)
Quarter: 2025Q3

REPORT INFORMATION
  Report Type: Spontaneous
  Country: EU (occurrence: EU)
  Receive Date: 20250822
  Receipt Date: 20250822
  Transmission Date: 20251021
  Serious: Yes (Other)
  Sender: AUROBINDO
  Company Number: EU-002147023-NVSC2025DE125103

PATIENT
  Sex: Female

DRUGS (5)
  1. LETROZOLE [Suspect]
     Active Substance: LETROZOLE
     Indication: Hormone receptor positive HER2 negative breast cancer
     Dosage: 2.5 MILLIGRAM, ONCE A DAY
     Route: 048
     Dates: start: 20250204
  2. KISQALI [Suspect]
     Active Substance: RIBOCICLIB SUCCINATE
     Indication: Hormone receptor positive HER2 negative breast cancer
     Dosage: 400 MILLIGRAM, ONCE A DAY (400 MG, QD ((TOTAL DAILY DOSE),21 DAYS DAILY INTAKE, 7 DAYS PAUSE ))
     Route: 048
     Dates: start: 20250305, end: 20250404
  3. KISQALI [Suspect]
     Active Substance: RIBOCICLIB SUCCINATE
     Dosage: 200 MILLIGRAM, ONCE A DAY (200 MG, QD ((TOTAL DAILY DOSE),21 DAYS DAILY INTAKE, 7 DAYS PAUSE ))
     Route: 048
     Dates: start: 20250405, end: 20250429
  4. KISQALI [Suspect]
     Active Substance: RIBOCICLIB SUCCINATE
     Dosage: 400 MILLIGRAM, ONCE A DAY (400 MG, QD ((TOTAL DAILY DOSE),21 DAYS DAILY INTAKE, 7 DAYS PAUSE ))
     Route: 048
     Dates: start: 20250430, end: 20250520
  5. KISQALI [Suspect]
     Active Substance: RIBOCICLIB SUCCINATE
     Dosage: 200 MILLIGRAM, ONCE A DAY (200 MG, QD ((TOTAL DAILY DOSE),21 DAYS DAILY INTAKE, 7 DAYS PAUSE ))
     Route: 048
     Dates: start: 20250626

REACTIONS (1)
  - Neutropenia [Recovered/Resolved]

NARRATIVE: CASE EVENT DATE: 20250404
